FAERS Safety Report 16901877 (Version 2)
Quarter: 2019Q4

REPORT INFORMATION
  Report Type: Report from Study
  Country: None (occurrence: US)
  Receive Date: 20191010
  Receipt Date: 20191017
  Transmission Date: 20200122
  Serious: Yes (Death)
  Sender: FDA-Public Use
  Company Number: US-ABBVIE-19K-163-2955471-00

PATIENT
  Sex: Male

DRUGS (1)
  1. VENCLEXTA [Suspect]
     Active Substance: VENETOCLAX
     Indication: ACUTE MYELOID LEUKAEMIA
     Route: 048

REACTIONS (6)
  - Haemoglobin decreased [Fatal]
  - Pericardial effusion [Fatal]
  - Speech disorder [Fatal]
  - Platelet count decreased [Fatal]
  - Atrial fibrillation [Fatal]
  - Gait disturbance [Fatal]
